APPROVED DRUG PRODUCT: KETOCONAZOLE
Active Ingredient: KETOCONAZOLE
Strength: 200MG
Dosage Form/Route: TABLET;ORAL
Application: A075341 | Product #001
Applicant: AAIPHARMA LLC
Approved: Jul 27, 1999 | RLD: No | RS: No | Type: DISCN